FAERS Safety Report 8916275 (Version 1)
Quarter: 2012Q4

REPORT INFORMATION
  Report Type: 
  Country: US (occurrence: US)
  Receive Date: 20121120
  Receipt Date: 20121120
  Transmission Date: 20130627
  Serious: No
  Sender: FDA-Public Use
  Company Number: US-ASTRAZENECA-2012SE85634

PATIENT
  Age: 70 Year
  Sex: Female
  Weight: 104.3 kg

DRUGS (19)
  1. NEXIUM [Suspect]
     Indication: GASTROOESOPHAGEAL REFLUX DISEASE
     Route: 048
     Dates: start: 201205
  2. PRILOSEC OTC [Suspect]
     Indication: GASTROOESOPHAGEAL REFLUX DISEASE
     Route: 048
  3. PRILOSEC DELAYED RELEASE [Suspect]
     Indication: GASTROOESOPHAGEAL REFLUX DISEASE
     Route: 048
     Dates: start: 1989
  4. ZANTAC [Concomitant]
  5. HUMALOG 50/50 [Concomitant]
     Indication: DIABETES MELLITUS
  6. VICTOZA [Concomitant]
     Indication: DIABETES MELLITUS
  7. PROPANOLOL LONG ACTING [Concomitant]
     Indication: MIGRAINE
  8. PROPANOLOL LONG ACTING [Concomitant]
     Indication: CARDIAC DISORDER
  9. FLEXERIL [Concomitant]
     Indication: FIBROMYALGIA
  10. FLEXERIL [Concomitant]
     Indication: ARTHRITIS
  11. CYMBALTA [Concomitant]
     Indication: FIBROMYALGIA
  12. CYMBALTA [Concomitant]
     Indication: ANXIETY
  13. VESICARE [Concomitant]
     Indication: INCONTINENCE
  14. BENICAR [Concomitant]
     Indication: BLOOD PRESSURE
  15. AMLODIPINE [Concomitant]
     Indication: BLOOD PRESSURE
  16. SIMVASTATIN [Concomitant]
     Indication: BLOOD CHOLESTEROL
  17. BENTYL [Concomitant]
     Indication: BLADDER SPASM
  18. ROPINOROLE [Concomitant]
     Indication: RESTLESS LEGS SYNDROME
  19. VICODIN [Concomitant]
     Indication: ARTHRITIS

REACTIONS (9)
  - Fibromyalgia [Unknown]
  - Hypertension [Unknown]
  - Anxiety [Unknown]
  - Renal disorder [Unknown]
  - Cardiac disorder [Unknown]
  - Tachycardia [Unknown]
  - Mobility decreased [Unknown]
  - Dyspepsia [Unknown]
  - Drug ineffective [Unknown]
